FAERS Safety Report 4985843-8 (Version None)
Quarter: 2006Q2

REPORT INFORMATION
  Report Type: 
  Country: None (occurrence: None)
  Receive Date: 20060428
  Receipt Date: 20050517
  Transmission Date: 20061013
  Serious: No
  Sender: FDA-Public Use
  Company Number: US-GLAXOSMITHKLINE-A0558990A

PATIENT
  Age: 20 Month
  Sex: Male
  Weight: 13.2 kg

DRUGS (2)
  1. ZOFRAN [Suspect]
     Indication: NAUSEA
     Dosage: 2MG FOUR TIMES PER DAY
     Route: 048
     Dates: start: 20050517
  2. NO CONCURRENT MEDICATION [Concomitant]

REACTIONS (1)
  - INCORRECT DOSE ADMINISTERED [None]
